FAERS Safety Report 9619316 (Version 1)
Quarter: 2013Q4

REPORT INFORMATION
  Report Type: Spontaneous
  Country: US (occurrence: US)
  Receive Date: 20131014
  Receipt Date: 20131014
  Transmission Date: 20140711
  Serious: Yes (Hospitalization)
  Sender: FDA-Public Use
  Company Number: US-PFIZER INC-2013292130

PATIENT
  Age: 8 Year
  Sex: Male
  Weight: 21 kg

DRUGS (4)
  1. PHENYTOIN [Suspect]
     Indication: CONVULSION
     Dosage: 10 MG/KG, DAILY (200MG/DAY)
  2. PRIMIDONE [Suspect]
     Indication: CONVULSION
     Dosage: 15 MG/KG, DAILY (250MG/DAY)
  3. ETHOSUXIMIDE [Suspect]
     Indication: CONVULSION
     Dosage: 35 MG/KG, DAILY (750MG/DAY)
  4. ACETAZOLAMIDE [Suspect]
     Indication: CONVULSION
     Dosage: 25 MG/KG, DAILY (750MG/DAY)

REACTIONS (2)
  - Choreoathetosis [Recovered/Resolved]
  - Dystonia [Recovered/Resolved]
